FAERS Safety Report 6256407-3 (Version None)
Quarter: 2009Q2

REPORT INFORMATION
  Report Type: 
  Country: None (occurrence: None)
  Receive Date: 20090630
  Receipt Date: 20090630
  Transmission Date: 20091009
  Serious: Yes (Life-Threatening, Hospitalization)
  Sender: FDA-Public Use
  Company Number: None

PATIENT
  Age: 28 Year
  Sex: Female
  Weight: 63.5036 kg

DRUGS (1)
  1. COZAAR [Suspect]
     Dosage: 50MG ONCE A DAY PO
     Route: 048
     Dates: start: 20090101, end: 20090627

REACTIONS (2)
  - ANGIOEDEMA [None]
  - URTICARIA [None]
